FAERS Safety Report 8329616-7 (Version None)
Quarter: 2012Q2

REPORT INFORMATION
  Report Type: 
  Country: None (occurrence: None)
  Receive Date: 20120502
  Receipt Date: 20120425
  Transmission Date: 20120825
  Serious: Yes (Other)
  Sender: FDA-Public Use
  Company Number: US-PFIZER INC-2012102944

PATIENT
  Sex: Female
  Weight: 50.79 kg

DRUGS (10)
  1. DILAUDID [Concomitant]
     Indication: PAIN
     Dosage: UNK
  2. LYRICA [Suspect]
     Indication: PAIN
     Dosage: 50 MG, THREE TIMES A DAY
     Route: 048
     Dates: start: 20120423, end: 20120424
  3. PERCOCET [Concomitant]
     Indication: FIBROMYALGIA
  4. PERCOCET [Concomitant]
     Indication: PAIN
     Dosage: UNK
  5. DURAGESIC-100 [Concomitant]
     Indication: PAIN
     Dosage: UNK
  6. DILAUDID [Concomitant]
     Indication: FIBROMYALGIA
  7. OXYCONTIN [Concomitant]
     Indication: PAIN
     Dosage: UNK
  8. DURAGESIC-100 [Concomitant]
     Indication: FIBROMYALGIA
  9. LYRICA [Suspect]
     Indication: FIBROMYALGIA
  10. OXYCONTIN [Concomitant]
     Indication: FIBROMYALGIA

REACTIONS (2)
  - PLATELET COUNT DECREASED [None]
  - LEUKOPENIA [None]
